FAERS Safety Report 4993390-2 (Version None)
Quarter: 2006Q2

REPORT INFORMATION
  Report Type: 
  Country: None (occurrence: None)
  Receive Date: 20060505
  Receipt Date: 20060426
  Transmission Date: 20061013
  Serious: Yes (Other)
  Sender: FDA-Public Use
  Company Number: US-AVENTIS-200613846US

PATIENT
  Sex: Female

DRUGS (5)
  1. NORITATE [Suspect]
     Indication: ROSACEA
     Dosage: DOSE: UNK
     Route: 061
     Dates: start: 20060113
  2. ASPIRIN [Concomitant]
     Dosage: DOSE: UNK
  3. VITAMIN K [Concomitant]
     Dosage: DOSE: UNK
  4. CALCIUM GLUCONATE [Concomitant]
     Dosage: DOSE: UNK
  5. GELATIN [Concomitant]
     Dosage: DOSE: UNK

REACTIONS (6)
  - EUPHORIC MOOD [None]
  - FATIGUE [None]
  - MEMORY IMPAIRMENT [None]
  - SPEECH DISORDER [None]
  - THINKING ABNORMAL [None]
  - TRANSIENT ISCHAEMIC ATTACK [None]
